FAERS Safety Report 8476153-5 (Version None)
Quarter: 2012Q2

REPORT INFORMATION
  Report Type: 
  Country: None (occurrence: None)
  Receive Date: 20120622
  Receipt Date: 20120613
  Transmission Date: 20120825
  Serious: Yes (Life-Threatening, Hospitalization)
  Sender: FDA-Public Use
  Company Number: WAES1205USA03090

PATIENT
  Age: 49 Year
  Sex: Female

DRUGS (7)
  1. ITRACONAZOLE [Concomitant]
  2. LEVOFLOXACIN [Concomitant]
  3. ALLEGRA [Concomitant]
  4. PEPCID RPD [Concomitant]
  5. ROCEPHIN [Concomitant]
  6. ZOLINZA [Suspect]
     Indication: MYCOSIS FUNGOIDES
     Dosage: 400 MG/DAILY
     Route: 048
     Dates: start: 20120403, end: 20120413
  7. CELESTAMINE (BETAMETHASONE (+) DEXCHLORP [Concomitant]

REACTIONS (4)
  - DIARRHOEA [None]
  - BLOOD PRESSURE DECREASED [None]
  - HYPOKALAEMIA [None]
  - DEHYDRATION [None]
